FAERS Safety Report 7427080-3 (Version None)
Quarter: 2011Q2

REPORT INFORMATION
  Report Type: 
  Country: None (occurrence: None)
  Receive Date: 20110420
  Receipt Date: 20110418
  Transmission Date: 20111010
  Serious: Yes (Death)
  Sender: FDA-Public Use
  Company Number: PHHY2011DE32082

PATIENT
  Sex: Female
  Weight: 78 kg

DRUGS (6)
  1. SANDOSTATIN LAR [Suspect]
     Indication: ACROMEGALY
     Dosage: 10 MG, MONTHLY
     Route: 030
     Dates: start: 20090420, end: 20110322
  2. ACTOS [Concomitant]
     Route: 048
  3. CAPTOPRIL [Concomitant]
     Route: 048
  4. SERTRALINE [Concomitant]
     Route: 048
  5. ASPIRIN [Concomitant]
     Route: 048
  6. METFORMIN [Concomitant]
     Route: 048

REACTIONS (1)
  - DEATH [None]
